FAERS Safety Report 5598048-7 (Version None)
Quarter: 2008Q1

REPORT INFORMATION
  Report Type: 
  Country: None (occurrence: None)
  Receive Date: 20080122
  Receipt Date: 20080110
  Transmission Date: 20080703
  Serious: Yes (Hospitalization)
  Sender: FDA-Public Use
  Company Number: GB-ROCHE-538678

PATIENT
  Age: 55 Year
  Sex: Female
  Weight: 97 kg

DRUGS (4)
  1. ORLISTAT [Suspect]
     Indication: OBESITY
     Route: 048
     Dates: start: 20070828, end: 20071101
  2. ORLISTAT [Suspect]
     Route: 048
     Dates: start: 20071201
  3. ASPIRIN [Concomitant]
     Indication: ANTICOAGULANT THERAPY
     Route: 048
     Dates: start: 20071101
  4. 1 CONCOMITANT DRUG [Concomitant]
     Indication: PAIN
     Dosage: DRUG NAME: COCODAMOT
     Route: 048

REACTIONS (2)
  - MYOCARDIAL INFARCTION [None]
  - THROMBOSIS [None]
